FAERS Safety Report 8839070 (Version 1)
Quarter: 2012Q4

REPORT INFORMATION
  Report Type: Spontaneous
  Country: US (occurrence: None)
  Receive Date: 20121011
  Receipt Date: 20121011
  Transmission Date: 20130627
  Serious: Yes (Life-Threatening, Hospitalization)
  Sender: FDA-Public Use
  Company Number: None

PATIENT
  Age: 93 Year
  Sex: Female
  Weight: 52 kg

DRUGS (2)
  1. XARELTO [Suspect]
     Indication: ANTICOAGULANT THERAPY
     Dosage: 10mg qday po
     Route: 048
     Dates: start: 20120811, end: 20121006
  2. XARELTO [Suspect]
     Indication: FEMUR FRACTURE
     Dosage: 10mg qday po
     Route: 048
     Dates: start: 20120811, end: 20121006

REACTIONS (2)
  - Atrial fibrillation [None]
  - Pulmonary embolism [None]
